FAERS Safety Report 17572272 (Version 1)
Quarter: 2020Q1

REPORT INFORMATION
  Report Type: Spontaneous
  Country: GB (occurrence: GB)
  Receive Date: 20200323
  Receipt Date: 20200323
  Transmission Date: 20200409
  Serious: Yes (Disabling, Other)
  Sender: FDA-Public Use
  Company Number: GB-TEVA-2020-GB-1206464

PATIENT
  Age: 76 Year
  Sex: Female
  Weight: 68 kg

DRUGS (1)
  1. DONEPEZIL. [Suspect]
     Active Substance: DONEPEZIL
     Indication: DEMENTIA
     Dosage: 5 MG
     Route: 048
     Dates: start: 20200218

REACTIONS (2)
  - Nightmare [Recovered/Resolved]
  - Abnormal dreams [Recovered/Resolved]

NARRATIVE: CASE EVENT DATE: 20200218
